FAERS Safety Report 5101550-5 (Version None)
Quarter: 2006Q3

REPORT INFORMATION
  Report Type: 
  Country: None (occurrence: None)
  Receive Date: 20060911
  Receipt Date: 20060829
  Transmission Date: 20061208
  Serious: Yes (Hospitalization)
  Sender: FDA-Public Use
  Company Number: 2006GB01542

PATIENT
  Age: 6 Year
  Sex: Female

DRUGS (5)
  1. BUDESONIDE [Suspect]
     Indication: ASTHMA
     Route: 055
  2. FLUTICASONE PROPIONATE [Suspect]
     Indication: ASTHMA
     Route: 055
  3. ALBUTEROL SPIROS [Concomitant]
     Route: 055
  4. SALMETEROL XINAFOATE [Concomitant]
  5. THEOPHYLLINE [Concomitant]

REACTIONS (7)
  - ABDOMINAL PAIN UPPER [None]
  - ADRENOCORTICAL INSUFFICIENCY ACUTE [None]
  - BLOOD CORTISOL INCREASED [None]
  - BODY HEIGHT DECREASED [None]
  - FATIGUE [None]
  - NAUSEA [None]
  - VOMITING [None]
